FAERS Safety Report 6754275-4 (Version None)
Quarter: 2010Q2

REPORT INFORMATION
  Report Type: 
  Country: None (occurrence: None)
  Receive Date: 20100603
  Receipt Date: 20100524
  Transmission Date: 20101027
  Serious: Yes (Life-Threatening)
  Sender: FDA-Public Use
  Company Number: JP-MERCK-1005USA01198

PATIENT
  Age: 83 Year
  Sex: Female

DRUGS (8)
  1. JANUVIA [Suspect]
     Indication: TYPE 2 DIABETES MELLITUS
     Route: 048
     Dates: start: 20100222, end: 20100225
  2. GOREI-SAN [Concomitant]
     Route: 065
  3. ONEALFA [Concomitant]
     Route: 065
  4. TRICOR [Concomitant]
     Route: 065
  5. AMARYL [Concomitant]
     Route: 065
     Dates: start: 20091001
  6. AMARYL [Concomitant]
     Route: 065
     Dates: start: 20100227
  7. ACTOS [Suspect]
     Indication: TYPE 2 DIABETES MELLITUS
     Route: 048
     Dates: start: 20091001, end: 20100225
  8. CRESTOR [Concomitant]
     Route: 065

REACTIONS (1)
  - HYPOGLYCAEMIA [None]
